FAERS Safety Report 10209442 (Version 1)
Quarter: 2014Q2

REPORT INFORMATION
  Report Type: Report from Study
  Country: US (occurrence: US)
  Receive Date: 20140601
  Receipt Date: 20140601
  Transmission Date: 20141212
  Serious: Yes (Other)
  Sender: FDA-Public Use
  Company Number: PHEH2014US010892

PATIENT
  Age: 89 Year
  Sex: Female

DRUGS (4)
  1. TOBI [Suspect]
     Indication: BRONCHIECTASIS
     Dosage: 300 MG/5 ML ONE AMPOULE TWICE A DAY, 1 WEEK OUT OF THE MONTH
     Route: 055
  2. SOTALOL [Concomitant]
     Dosage: UKN
  3. DILTIAZEM [Concomitant]
     Dosage: UKN
  4. DIGOXIN [Concomitant]
     Dosage: UKN

REACTIONS (4)
  - Atrial fibrillation [Recovering/Resolving]
  - Muscular weakness [Recovering/Resolving]
  - Pyrexia [Recovering/Resolving]
  - Cough [Recovering/Resolving]
